FAERS Safety Report 8373076-7 (Version None)
Quarter: 2012Q2

REPORT INFORMATION
  Report Type: 
  Country: None (occurrence: None)
  Receive Date: 20120521
  Receipt Date: 20120514
  Transmission Date: 20120825
  Serious: Yes (Other)
  Sender: FDA-Public Use
  Company Number: PHHY2011DE29979

PATIENT
  Age: 69 Year
  Sex: Female
  Weight: 68 kg

DRUGS (6)
  1. DIPYRONE TAB [Concomitant]
     Indication: INTERVERTEBRAL DISC PROTRUSION
     Dosage: 500 MG, PRN
     Route: 048
  2. CERTICAN [Suspect]
     Indication: LIVER TRANSPLANT
     Dosage: 0.75 MG, BID, ONE TAB IN  THE MORNING AND ONE TAB IN THE EVENING
     Route: 048
  3. SCOPOLAMINE [Concomitant]
     Dosage: PRN
     Route: 048
  4. URSO FALK [Concomitant]
     Dosage: 1 DF, BID
     Route: 048
  5. ANTRAMUPS [Concomitant]
     Dosage: 20 MG, UNK
     Route: 048
  6. IBUPROFEN [Concomitant]
     Indication: INTERVERTEBRAL DISC PROTRUSION
     Dosage: 600 MG, TID
     Route: 048

REACTIONS (2)
  - IMMUNOSUPPRESSANT DRUG LEVEL DECREASED [None]
  - INTERVERTEBRAL DISC PROTRUSION [None]
